FAERS Safety Report 5711805-9 (Version None)
Quarter: 2008Q2

REPORT INFORMATION
  Report Type: 
  Country: None (occurrence: None)
  Receive Date: 20080421
  Receipt Date: 20080409
  Transmission Date: 20081010
  Serious: Yes (Other)
  Sender: FDA-Public Use
  Company Number: US-PFIZER INC-2008031781

PATIENT
  Age: 71 Year
  Sex: Male

DRUGS (4)
  1. VIAGRA [Suspect]
  2. CRESTOR [Concomitant]
     Route: 048
  3. LISINOPRIL [Concomitant]
  4. COUMADIN [Concomitant]

REACTIONS (1)
  - CEREBROVASCULAR ACCIDENT [None]
